FAERS Safety Report 19188814 (Version 7)
Quarter: 2022Q1

REPORT INFORMATION
  Report Type: Report from Study
  Country: US (occurrence: US)
  Receive Date: 20210428
  Receipt Date: 20220307
  Transmission Date: 20220423
  Serious: Yes (Hospitalization)
  Sender: FDA-Public Use
  Company Number: US-BOEHRINGERINGELHEIM-2021-BI-099123

PATIENT
  Age: 81 Year
  Sex: Female

DRUGS (2)
  1. OFEV [Suspect]
     Active Substance: NINTEDANIB
     Indication: Idiopathic pulmonary fibrosis
     Route: 048
     Dates: start: 20191211, end: 202104
  2. OFEV [Suspect]
     Active Substance: NINTEDANIB
     Route: 048

REACTIONS (8)
  - Rectal haemorrhage [Unknown]
  - Diverticulitis [Recovered/Resolved]
  - Haemorrhoids [Recovered/Resolved]
  - Limb discomfort [Unknown]
  - Urinary tract infection [Unknown]
  - Nausea [Unknown]
  - Diarrhoea [Unknown]
  - Diverticulitis [Unknown]

NARRATIVE: CASE EVENT DATE: 20220214
